FAERS Safety Report 17133029 (Version 3)
Quarter: 2021Q1

REPORT INFORMATION
  Report Type: Spontaneous
  Country: JP (occurrence: JP)
  Receive Date: 20191210
  Receipt Date: 20210330
  Transmission Date: 20210419
  Serious: Yes (Death, Hospitalization, Other)
  Sender: FDA-Public Use
  Company Number: JP-009507513-1912JPN000355J

PATIENT
  Age: 67 Year
  Sex: Male
  Weight: 46 kg

DRUGS (3)
  1. KEYTRUDA [Suspect]
     Active Substance: PEMBROLIZUMAB
     Indication: LUNG SQUAMOUS CELL CARCINOMA STAGE III
     Dosage: 200 MILLIGRAM, Q3W
     Route: 041
     Dates: start: 20190409, end: 20191106
  2. PACLITAXEL. [Suspect]
     Active Substance: PACLITAXEL
     Indication: LUNG SQUAMOUS CELL CARCINOMA STAGE III
     Dosage: 130 MILLIGRAM, QW
     Route: 041
     Dates: start: 20190409, end: 20190710
  3. CARBOPLATIN. [Suspect]
     Active Substance: CARBOPLATIN
     Indication: LUNG SQUAMOUS CELL CARCINOMA STAGE III
     Dosage: 365 MILLIGRAM, Q3W
     Route: 041
     Dates: start: 20190409, end: 20190626

REACTIONS (4)
  - Malaise [Unknown]
  - Off label use [Unknown]
  - Interstitial lung disease [Fatal]
  - Fatigue [Unknown]

NARRATIVE: CASE EVENT DATE: 20190509
